FAERS Safety Report 8612054-7 (Version None)
Quarter: 2012Q3

REPORT INFORMATION
  Report Type: 
  Country: None (occurrence: None)
  Receive Date: 20120822
  Receipt Date: 20120815
  Transmission Date: 20120928
  Serious: Yes (Death, Hospitalization)
  Sender: FDA-Public Use
  Company Number: NL-FRI-1000031250

PATIENT
  Sex: Male

DRUGS (12)
  1. ASCAL [Concomitant]
     Dosage: 100 MG
  2. RAMIPRIL [Concomitant]
     Route: 048
  3. ASCAL CARDIO BRISPER EFFERVESCENT [Concomitant]
     Route: 048
  4. CLOZAPINE [Concomitant]
     Route: 048
  5. ASPIRIN AND DIPYRIDAMOLE [Concomitant]
     Dosage: 25/200 MG
  6. OXAZEPAM [Concomitant]
     Route: 048
  7. OMEPRAZOLE [Concomitant]
     Dosage: 40 MG
     Route: 048
  8. ZOCOR [Concomitant]
     Dosage: 40 MG
     Route: 048
  9. CLOZAPINE [Concomitant]
     Dosage: 50 MG
     Route: 048
  10. SLOW-K [Concomitant]
     Route: 048
  11. LEXAPRO [Suspect]
     Indication: DEPRESSION
     Dosage: 20 MG
     Route: 048
  12. VITAMIN B COMPLEX CAP [Concomitant]

REACTIONS (2)
  - CIRCULATORY COLLAPSE [None]
  - SUDDEN DEATH [None]
